FAERS Safety Report 7704290-9 (Version None)
Quarter: 2011Q3

REPORT INFORMATION
  Report Type: 
  Country: None (occurrence: None)
  Receive Date: 20110823
  Receipt Date: 20110817
  Transmission Date: 20111222
  Serious: Yes (Disabling, Other)
  Sender: FDA-Public Use
  Company Number: PHEH2010US01802

PATIENT
  Sex: Female

DRUGS (10)
  1. LYRICA [Concomitant]
     Dosage: UNK UKN, UNK
  2. IBUPROFEN [Concomitant]
     Dosage: 600 MG, PRN
  3. EXTAVIA [Suspect]
     Indication: MULTIPLE SCLEROSIS
     Dosage: 0.25 MG, QOD
     Route: 058
     Dates: start: 20100128
  4. MULTI-VITAMINS [Concomitant]
     Dosage: UNK UKN, UNK
  5. NEURONTIN [Concomitant]
     Dosage: 400 MG, TID
  6. GOODYS POWDERS [Concomitant]
     Dosage: UNK UKN, UNK
  7. ACETAMINOPHEN [Concomitant]
     Dosage: UNK UKN, UNK
  8. STEROIDS NOS [Concomitant]
     Dosage: UNK UKN, UNK
  9. VITAMIN B-12 [Concomitant]
     Dosage: 2500 U, QD
  10. M.V.I. [Concomitant]
     Dosage: 1 DF, QD

REACTIONS (12)
  - INJECTION SITE PAIN [None]
  - DYSPHAGIA [None]
  - INFLUENZA LIKE ILLNESS [None]
  - ASPARTATE AMINOTRANSFERASE INCREASED [None]
  - MENISCUS LESION [None]
  - PAIN [None]
  - MYALGIA [None]
  - FATIGUE [None]
  - BLOOD ALKALINE PHOSPHATASE INCREASED [None]
  - SWOLLEN TONGUE [None]
  - ALOPECIA [None]
  - BURNING SENSATION [None]
